FAERS Safety Report 9052105 (Version 1)
Quarter: 2013Q1

REPORT INFORMATION
  Report Type: Spontaneous
  Country: US (occurrence: None)
  Receive Date: 20130131
  Receipt Date: 20130131
  Transmission Date: 20140127
  Serious: Yes (Other)
  Sender: FDA-Public Use
  Company Number: None

PATIENT
  Age: 57 Year
  Sex: Female
  Weight: 92.08 kg

DRUGS (1)
  1. ALPRAZOLAM 0.25 MG (MYLAN A) [Suspect]
     Indication: ANXIETY
     Dosage: 1/2 TAB PRN MOUTH
     Route: 048
     Dates: start: 20121227

REACTIONS (4)
  - Anxiety [None]
  - Product substitution issue [None]
  - Product shape issue [None]
  - Product quality issue [None]
